FAERS Safety Report 12741746 (Version 2)
Quarter: 2016Q4

REPORT INFORMATION
  Report Type: Spontaneous
  Country: US (occurrence: US)
  Receive Date: 20160914
  Receipt Date: 20161012
  Transmission Date: 20170207
  Serious: No
  Sender: FDA-Public Use
  Company Number: US-PFIZER INC-2016432005

PATIENT
  Age: 84 Year
  Sex: Female

DRUGS (14)
  1. SPIRONOLACTONE A L [Concomitant]
     Active Substance: SPIRONOLACTONE
     Dosage: 25 MG, ALTERNATE DAY
  2. CALTRATE 600 +D PLUS [Concomitant]
     Dosage: UNK UNK, 2X/DAY
  3. OMEPRAZOLE. [Concomitant]
     Active Substance: OMEPRAZOLE
     Dosage: 20 MG, 1X/DAY
  4. CELECOXIB. [Suspect]
     Active Substance: CELECOXIB
     Indication: FIBROMYALGIA
  5. METOPROLOL TARTRATE. [Concomitant]
     Active Substance: METOPROLOL TARTRATE
     Dosage: 25 MG, 3X/DAY
  6. DYMISTA [Concomitant]
     Active Substance: AZELASTINE HYDROCHLORIDE\FLUTICASONE PROPIONATE
     Dosage: 137 MG, 1X/DAY
  7. PRESERVISION AREDS 2 [Concomitant]
     Dosage: UNK UNK, 2X/DAY
  8. AMLODIPINE BESILATE [Concomitant]
     Active Substance: AMLODIPINE BESYLATE
     Dosage: 2.5 MG, 1X/DAY
  9. DICYCLOMINE [Concomitant]
     Active Substance: DICYCLOMINE HYDROCHLORIDE
     Dosage: 10 MG, 2X/DAY (BEFORE MILLS)
  10. CLARITIN [Concomitant]
     Active Substance: LORATADINE
     Dosage: 10 MG, 1X/DAY
  11. ECOTRIN [Concomitant]
     Active Substance: ASPIRIN
     Dosage: 81 MG, 1X/DAY
  12. CELECOXIB. [Suspect]
     Active Substance: CELECOXIB
     Indication: OSTEOARTHRITIS
  13. CELECOXIB. [Suspect]
     Active Substance: CELECOXIB
     Indication: ARTHRITIS
     Dosage: 200 MG, 2X/DAY
     Dates: start: 20150101
  14. ATORVASTATIN CALCIUM. [Concomitant]
     Active Substance: ATORVASTATIN CALCIUM
     Dosage: 20 MG, 1X/DAY

REACTIONS (4)
  - Inflammation [Unknown]
  - Pain [Unknown]
  - Condition aggravated [Unknown]
  - Drug ineffective [Recovered/Resolved]

NARRATIVE: CASE EVENT DATE: 20150101
